FAERS Safety Report 16665177 (Version 2)
Quarter: 2021Q3

REPORT INFORMATION
  Report Type: Spontaneous
  Country: US (occurrence: US)
  Receive Date: 20190803
  Receipt Date: 20210806
  Transmission Date: 20211014
  Serious: Yes (Other)
  Sender: FDA-Public Use
  Company Number: US-ACCORD-110137

PATIENT
  Age: 59 Year
  Sex: Female

DRUGS (20)
  1. ELIQUIS [Concomitant]
     Active Substance: APIXABAN
  2. PROTONIX [Concomitant]
     Active Substance: PANTOPRAZOLE SODIUM
  3. LEVOTHYROXINE. [Concomitant]
     Active Substance: LEVOTHYROXINE
  4. MIRAPEX [Concomitant]
     Active Substance: PRAMIPEXOLE DIHYDROCHLORIDE
  5. ANASTROZOLE. [Concomitant]
     Active Substance: ANASTROZOLE
  6. EZETIMIBE. [Concomitant]
     Active Substance: EZETIMIBE
  7. HUMALOG [Concomitant]
     Active Substance: INSULIN LISPRO
  8. VALIUM [Concomitant]
     Active Substance: DIAZEPAM
  9. VICTOZA [Concomitant]
     Active Substance: LIRAGLUTIDE
  10. DOCETAXEL ACCORD [Suspect]
     Active Substance: DOCETAXEL
     Indication: BREAST CANCER
     Dosage: NUMBER OF CYCLES: 06
     Dates: start: 20110624, end: 20111007
  11. CYTOXIN [Suspect]
     Active Substance: CYCLOPHOSPHAMIDE
     Indication: BREAST CANCER
     Dosage: NUMBER OF CYCLES: 06
     Dates: start: 20110624, end: 20111007
  12. INDUX [Concomitant]
  13. ATORVASTATIN [Concomitant]
     Active Substance: ATORVASTATIN
  14. COLECALCIFEROL [Concomitant]
     Active Substance: CHOLECALCIFEROL
  15. ACETYLSALICYLIC ACID [Concomitant]
     Active Substance: ASPIRIN
  16. LEVEMIR [Concomitant]
     Active Substance: INSULIN DETEMIR
  17. RANEXA [Concomitant]
     Active Substance: RANOLAZINE
  18. METOPROLOL. [Concomitant]
     Active Substance: METOPROLOL
  19. DILTIAZEM. [Concomitant]
     Active Substance: DILTIAZEM
  20. LUMIGAN [Concomitant]
     Active Substance: BIMATOPROST

REACTIONS (1)
  - Alopecia [Not Recovered/Not Resolved]

NARRATIVE: CASE EVENT DATE: 20120101
